FAERS Safety Report 17229655 (Version 2)
Quarter: 2020Q1

REPORT INFORMATION
  Report Type: Spontaneous
  Country: BR (occurrence: BR)
  Receive Date: 20200103
  Receipt Date: 20200206
  Transmission Date: 20200409
  Serious: Yes (Hospitalization)
  Sender: FDA-Public Use
  Company Number: BR-CELGENEUS-BRA-20191210886

PATIENT
  Sex: Male

DRUGS (1)
  1. VIDAZA [Suspect]
     Active Substance: AZACITIDINE
     Indication: MYELODYSPLASTIC SYNDROME
     Dosage: ONE AMPOULE AND A HALF
     Route: 065
     Dates: start: 20160201, end: 201912

REACTIONS (3)
  - Anaemia [Unknown]
  - Immune system disorder [Not Recovered/Not Resolved]
  - Ear injury [Recovering/Resolving]

NARRATIVE: CASE EVENT DATE: 2019
